FAERS Safety Report 17353249 (Version 6)
Quarter: 2020Q4

REPORT INFORMATION
  Report Type: Report from Study
  Country: None (occurrence: US)
  Receive Date: 20200131
  Receipt Date: 20201126
  Transmission Date: 20210113
  Serious: Yes (Hospitalization, Other)
  Sender: FDA-Public Use
  Company Number: US-ABBVIE-20K-163-3255398-00

PATIENT
  Age: 44 Year
  Sex: Female
  Weight: 56.3 kg

DRUGS (15)
  1. BABY ASPIRIN [Concomitant]
     Active Substance: ASPIRIN
     Indication: CARDIAC DISORDER
  2. CALCIUM [Concomitant]
     Active Substance: CALCIUM
     Indication: MINERAL SUPPLEMENTATION
  3. EQUATE [Concomitant]
     Indication: HYPERSENSITIVITY
  4. HUMIRA [Suspect]
     Active Substance: ADALIMUMAB
     Indication: RHEUMATOID ARTHRITIS
     Route: 058
     Dates: start: 2017, end: 201912
  5. HUMIRA [Suspect]
     Active Substance: ADALIMUMAB
     Route: 058
  6. POTASSIUM [Concomitant]
     Active Substance: POTASSIUM
     Indication: MINERAL SUPPLEMENTATION
  7. VITAMIN E [Concomitant]
     Active Substance: .ALPHA.-TOCOPHEROL
     Indication: PRODUCT USED FOR UNKNOWN INDICATION
  8. PREDNISONE. [Suspect]
     Active Substance: PREDNISONE
     Indication: PRODUCT USED FOR UNKNOWN INDICATION
     Route: 065
  9. OMEPRAZOLE. [Concomitant]
     Active Substance: OMEPRAZOLE
     Indication: GASTROOESOPHAGEAL REFLUX DISEASE
  10. VITAMIN D 12000 UNITS [Concomitant]
     Indication: VITAMIN SUPPLEMENTATION
  11. METHOTREXATE. [Suspect]
     Active Substance: METHOTREXATE
     Indication: RHEUMATOID ARTHRITIS
     Dosage: PILL
     Route: 065
  12. IRON [Concomitant]
     Active Substance: IRON
     Indication: MINERAL SUPPLEMENTATION
  13. IBUPROFEN. [Concomitant]
     Active Substance: IBUPROFEN
     Indication: PRODUCT USED FOR UNKNOWN INDICATION
  14. FOLIC ACID. [Concomitant]
     Active Substance: FOLIC ACID
     Indication: RHEUMATOID ARTHRITIS
  15. DICYCLOMINE [Concomitant]
     Active Substance: DICYCLOMINE HYDROCHLORIDE
     Indication: GASTRIC DISORDER

REACTIONS (30)
  - Rheumatoid arthritis [Recovered/Resolved]
  - Freezing phenomenon [Not Recovered/Not Resolved]
  - Insomnia [Not Recovered/Not Resolved]
  - Injection site pain [Recovered/Resolved]
  - Joint lock [Not Recovered/Not Resolved]
  - Chills [Recovered/Resolved]
  - Depression [Unknown]
  - Intra-abdominal fluid collection [Recovered/Resolved]
  - Myocardial infarction [Recovered/Resolved]
  - Irritability [Unknown]
  - Chest pain [Recovered/Resolved]
  - Muscle spasms [Not Recovered/Not Resolved]
  - Injection site erythema [Recovered/Resolved]
  - Injection site swelling [Recovered/Resolved]
  - Hepatic enzyme increased [Recovering/Resolving]
  - Rheumatoid arthritis [Not Recovered/Not Resolved]
  - Pain in extremity [Not Recovered/Not Resolved]
  - Intra-abdominal fluid collection [Recovered/Resolved]
  - Pericardial effusion [Recovered/Resolved]
  - Pain [Recovered/Resolved]
  - Poor quality sleep [Unknown]
  - Anxiety [Unknown]
  - Abdominal distension [Recovered/Resolved]
  - Weight decreased [Unknown]
  - Liver disorder [Unknown]
  - Infection [Not Recovered/Not Resolved]
  - Insomnia [Recovered/Resolved]
  - Anxiety [Recovered/Resolved]
  - Swelling [Recovered/Resolved]
  - Nasopharyngitis [Not Recovered/Not Resolved]

NARRATIVE: CASE EVENT DATE: 2017
